FAERS Safety Report 6449687-2 (Version None)
Quarter: 2009Q4

REPORT INFORMATION
  Report Type: 
  Country: None (occurrence: None)
  Receive Date: 20091120
  Receipt Date: 20090121
  Transmission Date: 20100525
  Serious: Yes (Hospitalization)
  Sender: FDA-Public Use
  Company Number: US-AMGEN-QUU322617

PATIENT
  Sex: Female
  Weight: 77.2 kg

DRUGS (3)
  1. ENBREL [Suspect]
     Indication: RHEUMATOID ARTHRITIS
     Route: 058
     Dates: start: 20080926, end: 20090107
  2. ENBREL [Suspect]
     Indication: PSORIASIS
  3. ARAVA [Concomitant]
     Dates: start: 20081020

REACTIONS (5)
  - INJECTION SITE ERYTHEMA [None]
  - INJECTION SITE INDURATION [None]
  - INJECTION SITE SWELLING [None]
  - INJECTION SITE WARMTH [None]
  - LOCALISED INFECTION [None]
